FAERS Safety Report 15651511 (Version 2)
Quarter: 2019Q1

REPORT INFORMATION
  Report Type: Spontaneous
  Country: US (occurrence: US)
  Receive Date: 20181123
  Receipt Date: 20190102
  Transmission Date: 20190417
  Serious: No
  Sender: FDA-Public Use
  Company Number: US-ASTRAZENECA-2018SF42267

PATIENT
  Age: 788 Month
  Sex: Female
  Weight: 90.7 kg

DRUGS (1)
  1. TUDORZA PRESSAIR [Suspect]
     Active Substance: ACLIDINIUM BROMIDE
     Indication: CHRONIC OBSTRUCTIVE PULMONARY DISEASE
     Dosage: 1 PUFF DAILY
     Route: 055
     Dates: start: 2015

REACTIONS (3)
  - Product dose omission [Not Recovered/Not Resolved]
  - Device malfunction [Unknown]
  - Off label use [Unknown]

NARRATIVE: CASE EVENT DATE: 201810
